FAERS Safety Report 10409567 (Version 3)
Quarter: 2014Q4

REPORT INFORMATION
  Report Type: Spontaneous
  Country: US (occurrence: US)
  Receive Date: 20140826
  Receipt Date: 20141024
  Transmission Date: 20150528
  Serious: No
  Sender: FDA-Public Use
  Company Number: US-PFIZER INC-2013305497

PATIENT
  Age: 67 Year
  Sex: Male
  Weight: 84 kg

DRUGS (5)
  1. LISINOPRIL. [Concomitant]
     Active Substance: LISINOPRIL
     Indication: HYPERTENSION
     Dosage: UNK
  2. LYRICA [Suspect]
     Active Substance: PREGABALIN
     Indication: NEUROPATHY PERIPHERAL
     Dosage: 50 UNK, BID
     Route: 048
     Dates: start: 20130827
  3. LYRICA [Suspect]
     Active Substance: PREGABALIN
     Dosage: 50 UNK, 3X/DAY
     Route: 048
  4. ATENOLOL. [Concomitant]
     Active Substance: ATENOLOL
     Indication: HYPERTENSION
     Dosage: UNK
  5. LIPITOR [Concomitant]
     Active Substance: ATORVASTATIN CALCIUM
     Dosage: UNK

REACTIONS (2)
  - Visual acuity reduced [Unknown]
  - Pain in extremity [Unknown]

NARRATIVE: CASE EVENT DATE: 20131104
